FAERS Safety Report 24527324 (Version 1)
Quarter: 2024Q4

REPORT INFORMATION
  Report Type: Report from Study
  Country: BR (occurrence: BR)
  Receive Date: 20241021
  Receipt Date: 20241021
  Transmission Date: 20250114
  Serious: No
  Sender: ROCHE
  Company Number: BR-ROCHE-3562314

PATIENT
  Age: 37 Year
  Sex: Male

DRUGS (3)
  1. COTELLIC [Suspect]
     Active Substance: COBIMETINIB
     Indication: Malignant melanoma
     Dosage: 3 COATED TABLETS OF 20 MG
     Route: 065
     Dates: start: 20180518
  2. ZELBORAF [Suspect]
     Active Substance: VEMURAFENIB
     Indication: Malignant melanoma
     Dosage: 3 COATED TABLETS OF 240 MG, TWICE A DAY, AT MORNING AND AT NIGHT, FROM DAY 1 TO DAY 28 OF EACH CYCLE
     Route: 065
     Dates: start: 20180518
  3. TECENTRIQ [Suspect]
     Active Substance: ATEZOLIZUMAB
     Indication: Malignant melanoma
     Dosage: 20 ML VIAL
     Route: 041
     Dates: start: 20180518

REACTIONS (2)
  - Inappropriate schedule of product administration [Unknown]
  - Aspartate aminotransferase increased [Recovering/Resolving]

NARRATIVE: CASE EVENT DATE: 20230419
